FAERS Safety Report 12675462 (Version 2)
Quarter: 2016Q3

REPORT INFORMATION
  Report Type: Spontaneous
  Country: GB (occurrence: GB)
  Receive Date: 20160823
  Receipt Date: 20160914
  Transmission Date: 20161109
  Serious: Yes (Death, Hospitalization)
  Sender: FDA-Public Use
  Company Number: GB-ROCHE-1816895

PATIENT
  Age: 60 Year
  Sex: Female

DRUGS (11)
  1. AMLODIPINE [Concomitant]
     Active Substance: AMLODIPINE BESYLATE
     Route: 065
  2. XELODA [Suspect]
     Active Substance: CAPECITABINE
     Indication: BREAST CANCER METASTATIC
     Dosage: 50% OF FULL DOSE
     Route: 065
     Dates: start: 20160119, end: 20160123
  3. METFORMIN [Concomitant]
     Active Substance: METFORMIN HYDROCHLORIDE
     Route: 065
  4. EXEMESTANE. [Concomitant]
     Active Substance: EXEMESTANE
     Route: 065
  5. MORPHINE [Concomitant]
     Active Substance: MORPHINE
  6. INDAPAMIDE. [Concomitant]
     Active Substance: INDAPAMIDE
     Route: 065
  7. LISINOPRIL. [Concomitant]
     Active Substance: LISINOPRIL
     Route: 065
  8. CLOPIDOGREL [Concomitant]
     Active Substance: CLOPIDOGREL BISULFATE
     Route: 065
  9. ATORVASTATIN [Concomitant]
     Active Substance: ATORVASTATIN
     Route: 065
  10. HERCEPTIN [Concomitant]
     Active Substance: TRASTUZUMAB
     Route: 065
  11. GLICLAZIDE [Concomitant]
     Active Substance: GLICLAZIDE
     Route: 065

REACTIONS (17)
  - Mucosal inflammation [Fatal]
  - Asthenia [Not Recovered/Not Resolved]
  - Vomiting [Not Recovered/Not Resolved]
  - Malaise [Not Recovered/Not Resolved]
  - Tachypnoea [Not Recovered/Not Resolved]
  - Tachycardia [Not Recovered/Not Resolved]
  - Nausea [Not Recovered/Not Resolved]
  - Pyrexia [Not Recovered/Not Resolved]
  - Swollen tongue [Not Recovered/Not Resolved]
  - Fatigue [Not Recovered/Not Resolved]
  - Acute kidney injury [Not Recovered/Not Resolved]
  - Hypotension [Not Recovered/Not Resolved]
  - Lip swelling [Not Recovered/Not Resolved]
  - Pancytopenia [Fatal]
  - Diarrhoea [Fatal]
  - Oral pain [Not Recovered/Not Resolved]
  - Hypertension [Not Recovered/Not Resolved]

NARRATIVE: CASE EVENT DATE: 20160122
